FAERS Safety Report 25004545 (Version 1)
Quarter: 2025Q1

REPORT INFORMATION
  Report Type: Report from Study
  Country: US (occurrence: US)
  Receive Date: 20250224
  Receipt Date: 20250224
  Transmission Date: 20250408
  Serious: Yes (Death)
  Sender: BAYER HEALTHCARE PHARMACEUTICALS INC.
  Company Number: US-BAYER-2025A025723

PATIENT
  Age: 87 Year
  Sex: Female
  Weight: 56.689 kg

DRUGS (12)
  1. ADEMPAS [Suspect]
     Active Substance: RIOCIGUAT
     Indication: Pulmonary arterial hypertension
     Dates: start: 20250117
  2. ADEMPAS [Suspect]
     Active Substance: RIOCIGUAT
     Indication: Pulmonary arterial hypertension
     Dosage: 2.5 MG, TID
     Route: 048
  3. MINERALS\VITAMINS [Concomitant]
     Active Substance: MINERALS\VITAMINS
  4. BUMETANIDE [Concomitant]
     Active Substance: BUMETANIDE
  5. MAGNESIUM [Concomitant]
     Active Substance: MAGNESIUM
  6. HYDROMORPHONE HCL [Concomitant]
     Active Substance: HYDROMORPHONE HYDROCHLORIDE
  7. METOLAZONE [Concomitant]
     Active Substance: METOLAZONE
  8. SUCRALFATE [Concomitant]
     Active Substance: SUCRALFATE
  9. ELIQUIS [Concomitant]
     Active Substance: APIXABAN
  10. OXYGEN [Concomitant]
     Active Substance: OXYGEN
  11. PRILOSEC OTC [Concomitant]
     Active Substance: OMEPRAZOLE MAGNESIUM
  12. CARVEDILOL [Concomitant]
     Active Substance: CARVEDILOL

REACTIONS (1)
  - Death [Fatal]

NARRATIVE: CASE EVENT DATE: 20250215
